FAERS Safety Report 22390469 (Version 8)
Quarter: 2025Q2

REPORT INFORMATION
  Report Type: Report from Study
  Country: CO (occurrence: CO)
  Receive Date: 20230531
  Receipt Date: 20250626
  Transmission Date: 20250716
  Serious: No
  Sender: TAKEDA
  Company Number: CO-TAKEDA-2022TUS049496

PATIENT
  Age: 25 Year
  Sex: Female
  Weight: 50 kg

DRUGS (2)
  1. ICATIBANT [Suspect]
     Active Substance: ICATIBANT ACETATE
     Indication: Hereditary angioedema
  2. ICATIBANT [Suspect]
     Active Substance: ICATIBANT ACETATE
     Indication: Hypocomplementaemia

REACTIONS (11)
  - Weight decreased [Unknown]
  - Pterygium [Unknown]
  - Application site rash [Recovered/Resolved]
  - Influenza like illness [Not Recovered/Not Resolved]
  - Vomiting [Recovering/Resolving]
  - Body height increased [Unknown]
  - Rhinorrhoea [Unknown]
  - Nasal congestion [Unknown]
  - Sinusitis [Unknown]
  - Headache [Not Recovered/Not Resolved]
  - Nausea [Recovering/Resolving]

NARRATIVE: CASE EVENT DATE: 20220718
